FAERS Safety Report 19288964 (Version 7)
Quarter: 2022Q2

REPORT INFORMATION
  Report Type: Spontaneous
  Country: GB (occurrence: GB)
  Receive Date: 20210522
  Receipt Date: 20220613
  Transmission Date: 20220721
  Serious: Yes (Hospitalization, Other)
  Sender: FDA-Public Use
  Company Number: NVSC2019GB072056

PATIENT
  Age: 7 Year
  Sex: Male

DRUGS (28)
  1. BISOPROLOL [Suspect]
     Active Substance: BISOPROLOL
     Indication: Product used for unknown indication
     Dosage: 2.5 MG, QD  (DRUG TAKEN BEYOND, EXPIRY DATE, MEDICATION ERROR, MISUSE, OFF LABEL U)
     Route: 065
  2. BISOPROLOL [Suspect]
     Active Substance: BISOPROLOL
     Dosage: 2.5 MG, QD (DRUG TAKEN BEYOND, EXPIRY DATE, MEDICATION ERROR, MISUSE, OFF LABEL U)
     Route: 065
  3. BISOPROLOL [Suspect]
     Active Substance: BISOPROLOL
     Dosage: 2.5 MG, QD (DRUG TAKEN BEYOND, EXPIRY DATE, MEDICATION ERROR, MISUSE, OFF LABEL U)
     Route: 065
  4. TRAMADOL [Suspect]
     Active Substance: TRAMADOL
     Indication: Product used for unknown indication
     Dosage: UNK
     Route: 065
  5. TRAMADOL [Suspect]
     Active Substance: TRAMADOL
     Dosage: 50 MG, QD
     Route: 065
  6. TRAMADOL [Suspect]
     Active Substance: TRAMADOL
     Dosage: UNK (MEDICATION ERROR, MISUSEUNK, STRENGTH: 100 MG)
     Route: 065
  7. TRAMADOL [Suspect]
     Active Substance: TRAMADOL
     Dosage: 100 MG, QD
     Route: 065
  8. TRAMADOL [Suspect]
     Active Substance: TRAMADOL
     Dosage: UNK  (MEDICATION ERROR, MISUSEUNK, STRENGTH: 100 MG)
     Route: 065
  9. TRAMADOL [Suspect]
     Active Substance: TRAMADOL
     Dosage: UNK  (MEDICATION ERROR, MISUSEUNK, STRENGTH: 100 MG)
     Route: 065
  10. TRAMADOL [Suspect]
     Active Substance: TRAMADOL
     Dosage: 100 MG, QD
     Route: 065
  11. LANSOPRAZOLE [Suspect]
     Active Substance: LANSOPRAZOLE
     Indication: Product used for unknown indication
     Dosage: 15 MG, QD
     Route: 065
  12. LANSOPRAZOLE [Suspect]
     Active Substance: LANSOPRAZOLE
     Dosage: 15 MG, QD
     Route: 065
  13. LANSOPRAZOLE [Suspect]
     Active Substance: LANSOPRAZOLE
     Dosage: 2.5 MG
     Route: 065
  14. LANSOPRAZOLE [Suspect]
     Active Substance: LANSOPRAZOLE
     Dosage: 15 MG, QD
     Route: 065
  15. ALFUZOSIN HYDROCHLORIDE [Suspect]
     Active Substance: ALFUZOSIN HYDROCHLORIDE
     Indication: Product used for unknown indication
     Dosage: 10 MG, QD
     Route: 065
  16. ALFUZOSIN HYDROCHLORIDE [Suspect]
     Active Substance: ALFUZOSIN HYDROCHLORIDE
     Dosage: 10 MG
     Route: 065
  17. DUTASTERIDE [Suspect]
     Active Substance: DUTASTERIDE
     Indication: Product used for unknown indication
     Dosage: 500 MG, QD
     Route: 065
  18. DUTASTERIDE [Suspect]
     Active Substance: DUTASTERIDE
     Dosage: 500 UG, QD
     Route: 065
  19. DAPTOMYCIN [Suspect]
     Active Substance: DAPTOMYCIN
     Indication: Device related infection
     Dosage: UNK
     Route: 042
  20. DAPTOMYCIN [Suspect]
     Active Substance: DAPTOMYCIN
     Indication: Bacteraemia
     Dosage: UNK
     Route: 065
  21. DAPTOMYCIN [Suspect]
     Active Substance: DAPTOMYCIN
     Dosage: UNK
     Route: 065
  22. VANCOMYCIN [Suspect]
     Active Substance: VANCOMYCIN
     Indication: Device related infection
     Dosage: UNK
     Route: 042
  23. VANCOMYCIN [Suspect]
     Active Substance: VANCOMYCIN
     Indication: Bacteraemia
     Dosage: UNK
     Route: 065
  24. ALFUZOSIN [Suspect]
     Active Substance: ALFUZOSIN
     Indication: Product used for unknown indication
     Dosage: 10 MG, QD (10 MILLIGRAM, STRENGTH: 10 MG, 10 MG, QD,ADDITIONAL)
     Route: 065
  25. ALFUZOSIN [Suspect]
     Active Substance: ALFUZOSIN
     Dosage: UNK
     Route: 065
  26. ALFUZOSIN [Suspect]
     Active Substance: ALFUZOSIN
     Dosage: 10 MG, QD (10 MILLIGRAM, STRENGTH: 10 MG)
     Route: 065
  27. ALFUZOSIN [Suspect]
     Active Substance: ALFUZOSIN
     Dosage: 1 DOSAGE FORM, QD
     Route: 065
  28. ALFUZOSIN [Suspect]
     Active Substance: ALFUZOSIN
     Dosage: 10 MG, QD (10 MILLIGRAM, STRENGTH: 10 MG, 10 MG, QD,ADDITIONAL)
     Route: 065

REACTIONS (17)
  - Malaise [Unknown]
  - Drug dispensed to wrong patient [Unknown]
  - Product administration error [Unknown]
  - Wrong patient received product [Unknown]
  - Product storage error [Unknown]
  - Lower respiratory tract infection [Unknown]
  - Antimicrobial susceptibility test resistant [Unknown]
  - Therapy non-responder [Unknown]
  - Expired product administered [Unknown]
  - Drug ineffective for unapproved indication [Unknown]
  - Therapeutic response delayed [Unknown]
  - Wrong product administered [Unknown]
  - Minimum inhibitory concentration [Unknown]
  - Product dispensing error [Unknown]
  - Wrong patient received product [Unknown]
  - Malaise [Unknown]
  - Intentional product misuse [Unknown]
